FAERS Safety Report 9203061 (Version 1)
Quarter: 2013Q2

REPORT INFORMATION
  Report Type: Spontaneous
  Country: US (occurrence: US)
  Receive Date: 20130402
  Receipt Date: 20130402
  Transmission Date: 20140414
  Serious: No
  Sender: FDA-Public Use
  Company Number: US-009507513-1304USA000483

PATIENT
  Age: 11 Year
  Sex: Male

DRUGS (1)
  1. SAPHRIS [Suspect]

REACTIONS (3)
  - Drug prescribing error [Unknown]
  - Drug administered to patient of inappropriate age [Unknown]
  - No adverse event [Unknown]
